FAERS Safety Report 14265305 (Version 1)
Quarter: 2017Q4

REPORT INFORMATION
  Report Type: Spontaneous
  Country: US (occurrence: US)
  Receive Date: 20171208
  Receipt Date: 20171208
  Transmission Date: 20180321
  Serious: No
  Sender: FDA-Public Use
  Company Number: US-GLAXOSMITHKLINE-US2017185013

PATIENT
  Age: 92 Year
  Sex: Male

DRUGS (1)
  1. DICLOFENAC SODIUM GEL [Suspect]
     Active Substance: DICLOFENAC SODIUM
     Indication: PAIN
     Dosage: UNK
     Route: 061
     Dates: start: 20171126

REACTIONS (2)
  - Inappropriate schedule of drug administration [Unknown]
  - Wrong technique in product usage process [Unknown]

NARRATIVE: CASE EVENT DATE: 20171126
